FAERS Safety Report 8129811-6 (Version None)
Quarter: 2012Q1

REPORT INFORMATION
  Report Type: 
  Country: None (occurrence: None)
  Receive Date: 20120210
  Receipt Date: 20120210
  Transmission Date: 20120608
  Serious: Yes (Life-Threatening)
  Sender: FDA-Public Use
  Company Number: None

PATIENT
  Sex: Female
  Weight: 112 kg

DRUGS (11)
  1. METOCLOPRAMIDE [Concomitant]
     Route: 042
  2. ANGIOMAX [Suspect]
     Indication: ACUTE MYOCARDIAL INFARCTION
     Dates: start: 20120205, end: 20120205
  3. FENTANYL CITRATE [Concomitant]
     Route: 042
  4. ONDANSETRON [Concomitant]
     Route: 042
  5. MORPHINE [Concomitant]
     Route: 042
  6. MIDAZOLAM [Concomitant]
     Route: 042
  7. CLOPIDOGREL [Concomitant]
     Route: 048
  8. VERAPAMIL EXTENDED-RELEASE [Concomitant]
  9. ASPIRIN [Concomitant]
     Route: 048
  10. NITROGLYCERIN [Concomitant]
     Route: 060
  11. HEPARIN [Concomitant]

REACTIONS (2)
  - PRODUCT QUALITY ISSUE [None]
  - THROMBOSIS IN DEVICE [None]
